FAERS Safety Report 8480325-3 (Version None)
Quarter: 2012Q2

REPORT INFORMATION
  Report Type: 
  Country: None (occurrence: None)
  Receive Date: 20120630
  Receipt Date: 20120621
  Transmission Date: 20120825
  Serious: Yes (Hospitalization)
  Sender: FDA-Public Use
  Company Number: FR-AMGEN-FRASP2012039665

PATIENT
  Age: 73 Year
  Sex: Female

DRUGS (12)
  1. CACIT D3 [Concomitant]
     Dosage: UNK
  2. ALENDRONATE SODIUM [Concomitant]
     Dosage: UNK
  3. EUPRESSYL                          /00631801/ [Concomitant]
     Dosage: UNK
  4. METHOTREXATE [Concomitant]
     Dosage: 15 MG, UNK
  5. VALSARTAN  AND HYDROCHLOROTHIAZIDE [Concomitant]
     Dosage: UNK
  6. CELIPROLOL [Concomitant]
     Dosage: UNK
  7. ENBREL [Suspect]
     Indication: RHEUMATOID ARTHRITIS
     Dosage: 50 MG, UNK
     Route: 058
     Dates: start: 20080101, end: 20120521
  8. AMLODIPINE BESYLATE [Concomitant]
     Dosage: UNK
  9. NEXIUM [Concomitant]
     Dosage: UNK
  10. ASPEGIC 1000 [Concomitant]
     Dosage: UNK
  11. TRAMADOL HCL [Concomitant]
     Dosage: UNK
  12. FOLIC ACID [Concomitant]
     Dosage: UNK

REACTIONS (3)
  - FALL [None]
  - ERYSIPELAS [None]
  - HYGROMA COLLI [None]
